FAERS Safety Report 9485389 (Version 8)
Quarter: 2013Q4

REPORT INFORMATION
  Report Type: Report from Study
  Country: US (occurrence: US)
  Receive Date: 20130829
  Receipt Date: 20131225
  Transmission Date: 20140711
  Serious: Yes (Hospitalization, Other)
  Sender: FDA-Public Use
  Company Number: US-ROCHE-1242035

PATIENT
  Age: 57 Year
  Sex: Male

DRUGS (4)
  1. PEGASYS [Suspect]
     Indication: CHRONIC HEPATITIS C
     Route: 058
     Dates: start: 20130618
  2. RIBASPHERE [Suspect]
     Indication: CHRONIC HEPATITIS C
     Dosage: IN DIVIDED DOSES, 600/600 FOR A 24 WEEK COURSE.
     Route: 048
     Dates: start: 20130618
  3. XANAX [Concomitant]
  4. PEPTO-BISMOL [Concomitant]

REACTIONS (40)
  - Heart rate increased [Unknown]
  - Dehydration [Unknown]
  - Blood pressure decreased [Unknown]
  - Weight decreased [Unknown]
  - Cardiac disorder [Unknown]
  - Hallucination, visual [Unknown]
  - Disorientation [Unknown]
  - Emotional disorder [Unknown]
  - Crying [Unknown]
  - Dizziness [Unknown]
  - Fall [Unknown]
  - Nausea [Unknown]
  - Balance disorder [Unknown]
  - Anger [Unknown]
  - Asthenia [Unknown]
  - Pyrexia [Unknown]
  - Chills [Unknown]
  - Abdominal discomfort [Unknown]
  - Paraesthesia [Unknown]
  - Dysgeusia [Unknown]
  - Malaise [Unknown]
  - Retching [Unknown]
  - Insomnia [Unknown]
  - Hypoaesthesia [Recovered/Resolved]
  - Fatigue [Unknown]
  - Feeling abnormal [Unknown]
  - Influenza like illness [Unknown]
  - Venous injury [Unknown]
  - Irritability [Unknown]
  - Weight decreased [Unknown]
  - Insomnia [Unknown]
  - Dysgeusia [Unknown]
  - Panic attack [Unknown]
  - Hepatic enzyme increased [Unknown]
  - Anger [Unknown]
  - Arrhythmia [Unknown]
  - Alopecia [Unknown]
  - Alopecia [Unknown]
  - Scab [Unknown]
  - Scab [Unknown]
